FAERS Safety Report 9451756 (Version 3)
Quarter: 2013Q4

REPORT INFORMATION
  Report Type: Spontaneous
  Country: US (occurrence: US)
  Receive Date: 20130812
  Receipt Date: 20131219
  Transmission Date: 20140711
  Serious: No
  Sender: FDA-Public Use
  Company Number: US-BIOGENIDEC-2013BI071709

PATIENT
  Sex: Female

DRUGS (1)
  1. TYSABRI [Suspect]
     Indication: MULTIPLE SCLEROSIS
     Route: 042
     Dates: start: 20130422, end: 20130916

REACTIONS (3)
  - Urinary tract infection [Unknown]
  - Gastrointestinal infection [Unknown]
  - Cystitis [Not Recovered/Not Resolved]
